FAERS Safety Report 6502106-X (Version None)
Quarter: 2009Q4

REPORT INFORMATION
  Report Type: 
  Country: None (occurrence: None)
  Receive Date: 20091216
  Receipt Date: 20091204
  Transmission Date: 20100525
  Serious: Yes (Life-Threatening, Hospitalization)
  Sender: FDA-Public Use
  Company Number: DE-GENENTECH-295682

PATIENT
  Sex: Male
  Weight: 74 kg

DRUGS (5)
  1. RITUXIMAB [Suspect]
     Indication: B-CELL LYMPHOMA
     Dosage: 738 MG, Q21D
     Route: 042
     Dates: start: 20091119, end: 20091129
  2. CYCLOPHOSPHAMIDE [Suspect]
     Indication: B-CELL LYMPHOMA
     Dosage: 1477 MG, Q21D
     Route: 042
     Dates: start: 20091119, end: 20091129
  3. DOXORUBICIN HCL [Suspect]
     Indication: DRUG USE FOR UNKNOWN INDICATION
     Dosage: 98.5 MG, Q21D
     Route: 042
     Dates: start: 20091119, end: 20091129
  4. VINCRISTINE [Suspect]
     Indication: B-CELL LYMPHOMA
     Dosage: 1.4 MG/M2, Q21D
     Route: 042
     Dates: start: 20091119, end: 20091129
  5. PREDNISONE [Suspect]
     Indication: B-CELL LYMPHOMA
     Dosage: TAKEN ON DAY 1-D5 EVERY21 DAY
     Route: 048
     Dates: start: 20091119, end: 20091129

REACTIONS (5)
  - FEBRILE NEUTROPENIA [None]
  - INFLUENZA [None]
  - INTERSTITIAL LUNG DISEASE [None]
  - PNEUMONIA [None]
  - RESPIRATORY DISTRESS [None]
